FAERS Safety Report 13103349 (Version 1)
Quarter: 2017Q1

REPORT INFORMATION
  Report Type: Spontaneous
  Country: US (occurrence: US)
  Receive Date: 20170110
  Receipt Date: 20170110
  Transmission Date: 20170428
  Serious: No
  Sender: FDA-Public Use
  Company Number: US-ASTRAZENECA-2017SE01977

PATIENT
  Sex: Female

DRUGS (1)
  1. FASLODEX [Suspect]
     Active Substance: FULVESTRANT
     Dosage: UNKNOWN
     Route: 030

REACTIONS (3)
  - Pain in extremity [Unknown]
  - Injection site pain [Unknown]
  - Wrong technique in product usage process [Unknown]
